FAERS Safety Report 18559406 (Version 1)
Quarter: 2020Q4

REPORT INFORMATION
  Report Type: Spontaneous
  Country: GB (occurrence: GB)
  Receive Date: 20201130
  Receipt Date: 20201130
  Transmission Date: 20210114
  Serious: Yes (Hospitalization)
  Sender: FDA-Public Use
  Company Number: GB-TEVA-2020-GB-1853154

PATIENT
  Age: 69 Year
  Sex: Female
  Weight: 71 kg

DRUGS (6)
  1. NITROFURANTOIN. [Suspect]
     Active Substance: NITROFURANTOIN
     Indication: URINARY TRACT INFECTION
     Dosage: 3 DAYS, 2DF
     Route: 048
     Dates: start: 20200929, end: 20201001
  2. CARVEDILOL. [Concomitant]
     Active Substance: CARVEDILOL
  3. EPLERENONE. [Concomitant]
     Active Substance: EPLERENONE
  4. RIVAROXABAN [Concomitant]
     Active Substance: RIVAROXABAN
  5. SACUBITRIL VALSARTAN [Concomitant]
  6. ROSUVASTATIN. [Concomitant]
     Active Substance: ROSUVASTATIN

REACTIONS (13)
  - Ear discomfort [Unknown]
  - Malaise [Unknown]
  - Hyperhidrosis [Unknown]
  - Dehydration [Unknown]
  - Asthenia [Unknown]
  - Dizziness [Unknown]
  - Cough [Recovered/Resolved]
  - Pyrexia [Unknown]
  - Chest discomfort [Unknown]
  - Lethargy [Unknown]
  - Dyspnoea [Recovered/Resolved]
  - Decreased appetite [Recovering/Resolving]
  - Deafness bilateral [Unknown]

NARRATIVE: CASE EVENT DATE: 20201002
